FAERS Safety Report 15043354 (Version 1)
Quarter: 2018Q2

REPORT INFORMATION
  Report Type: Spontaneous
  Country: JP (occurrence: JP)
  Receive Date: 20180621
  Receipt Date: 20180621
  Transmission Date: 20180711
  Serious: Yes (Other)
  Sender: FDA-Public Use
  Company Number: JP-PFIZER INC-2018244317

PATIENT
  Age: 78 Year
  Sex: Male

DRUGS (1)
  1. CELECOX [Suspect]
     Active Substance: CELECOXIB
     Dosage: UNK UNK, 2X/DAY
     Route: 048
     Dates: start: 2017

REACTIONS (5)
  - Gastrointestinal mucosa hyperaemia [Unknown]
  - Gastrointestinal haemorrhage [Unknown]
  - Hypoaesthesia [Unknown]
  - Hypoaesthesia [Unknown]
  - Neck mass [Unknown]

NARRATIVE: CASE EVENT DATE: 20180511
